FAERS Safety Report 23368175 (Version 1)
Quarter: 2024Q1

REPORT INFORMATION
  Report Type: Spontaneous
  Country: US (occurrence: US)
  Receive Date: 20240105
  Receipt Date: 20240105
  Transmission Date: 20240410
  Serious: No
  Sender: FDA-Public Use
  Company Number: US-STRIDES ARCOLAB LIMITED-2023SP012683

PATIENT
  Age: 66 Year
  Sex: Male

DRUGS (3)
  1. ACYCLOVIR [Suspect]
     Active Substance: ACYCLOVIR
     Indication: Encephalopathy
     Dosage: 400 MILLIGRAM, TID
     Route: 065
     Dates: start: 202102
  2. ACYCLOVIR [Suspect]
     Active Substance: ACYCLOVIR
     Indication: Coagulopathy
     Dosage: 400 MILLIGRAM, BID
     Route: 065
     Dates: start: 2021
  3. ACYCLOVIR [Suspect]
     Active Substance: ACYCLOVIR
     Indication: COVID-19

REACTIONS (1)
  - Off label use [Unknown]

NARRATIVE: CASE EVENT DATE: 20210201
